FAERS Safety Report 4573793-0 (Version None)
Quarter: 2005Q1

REPORT INFORMATION
  Report Type: 
  Country: None (occurrence: None)
  Receive Date: 20050203
  Receipt Date: 20050119
  Transmission Date: 20050727
  Serious: Yes (Hospitalization)
  Sender: FDA-Public Use
  Company Number: F01200500115

PATIENT
  Age: 55 Year

DRUGS (4)
  1. OXALIPLATIN - SOLUTION - 85 MG/M2 [Suspect]
     Indication: COLORECTAL CANCER METASTATIC
     Dosage: 85 MG/M2 Q2W - INTRAVENOUS NOS
     Route: 042
  2. FLUOROURACIL [Suspect]
     Dosage: SEE IMAGE
  3. LEUCOVORIN CALCIUM [Suspect]
     Dosage: 200 MG/2 Q2W - INTRAVENOUS NOS
     Route: 042
  4. BEVACIZUMAB - SOLUTION - 10 MG/KG [Suspect]
     Dosage: 10 MG/KG Q2W - INTRAVENOUS NOS
     Route: 042

REACTIONS (10)
  - ANOREXIA [None]
  - BILE DUCT STENOSIS [None]
  - NAUSEA [None]
  - ODYNOPHAGIA [None]
  - OESOPHAGITIS [None]
  - ORAL INTAKE REDUCED [None]
  - PANCREATITIS [None]
  - POST PROCEDURAL COMPLICATION [None]
  - STOMATITIS [None]
  - VOMITING [None]
